FAERS Safety Report 5732022-2 (Version None)
Quarter: 2008Q2

REPORT INFORMATION
  Report Type: 
  Country: None (occurrence: None)
  Receive Date: 20080506
  Receipt Date: 20080409
  Transmission Date: 20081010
  Serious: Yes (Hospitalization)
  Sender: FDA-Public Use
  Company Number: GB-DEXPHARM-20080326

PATIENT
  Age: 80 Year
  Sex: Male

DRUGS (12)
  1. DICLOFENAC 75 MG [Suspect]
     Indication: BACK PAIN
     Dosage: ^2/1 DAYS (75 MG MILLIGRAM(S))
     Dates: start: 20080320, end: 20080329
  2. AMIODARONE HYDROCHLORIDE [Concomitant]
  3. ATROVENT [Concomitant]
  4. BUMETANIDE [Concomitant]
  5. ISOSORBIDE MONONITRATE [Concomitant]
  6. LANSOPRAZOLE [Concomitant]
  7. NEBIVOLOL HCL [Concomitant]
  8. PERINDOPRIL ERBUMINE [Concomitant]
  9. SERETIDE (FLUTICASONE/SALMETEROL) [Concomitant]
  10. SPIRONOLACTONE [Concomitant]
  11. TOLTERODINE TARTRATE [Concomitant]
  12. WARFARIN SODIUM [Concomitant]

REACTIONS (5)
  - CARDIOVASCULAR DISORDER [None]
  - DYSPNOEA [None]
  - OEDEMA [None]
  - ORTHOPNOEA [None]
  - RENAL FAILURE [None]
